FAERS Safety Report 16809480 (Version 1)
Quarter: 2019Q3

REPORT INFORMATION
  Report Type: Report from Study
  Country: EC (occurrence: EC)
  Receive Date: 20190916
  Receipt Date: 20190916
  Transmission Date: 20191005
  Serious: Yes (Other)
  Sender: FDA-Public Use
  Company Number: EC-ROCHE-2380385

PATIENT
  Sex: Female

DRUGS (1)
  1. BONVIVA [Suspect]
     Active Substance: IBANDRONATE SODIUM
     Indication: PRODUCT USED FOR UNKNOWN INDICATION
     Dosage: PARENTERAL
     Route: 042

REACTIONS (4)
  - Peripheral swelling [Unknown]
  - Vasculitis [Unknown]
  - Cardiovascular disorder [Unknown]
  - Product administration error [Unknown]
